FAERS Safety Report 17930348 (Version 1)
Quarter: 2020Q2

REPORT INFORMATION
  Report Type: Spontaneous
  Country: ES (occurrence: ES)
  Receive Date: 20200623
  Receipt Date: 20200623
  Transmission Date: 20200714
  Serious: Yes (Hospitalization)
  Sender: FDA-Public Use
  Company Number: ES-TEVA-2020-ES-1789661

PATIENT
  Age: 65 Year
  Sex: Female

DRUGS (3)
  1. HIDROXICLOROQUINA (2143A) [Suspect]
     Active Substance: HYDROXYCHLOROQUINE
     Indication: COVID-19 PNEUMONIA
     Dosage: 400 MILLIGRAM DAILY;
     Route: 048
     Dates: start: 20200405, end: 20200413
  2. CEFTRIAXONA (501A) [Suspect]
     Active Substance: CEFTRIAXONE
     Indication: ANTIBIOTIC PROPHYLAXIS
  3. CEFTRIAXONA (501A) [Suspect]
     Active Substance: CEFTRIAXONE
     Indication: COVID-19 PNEUMONIA
     Dosage: 2 GRAM DAILY;
     Route: 042
     Dates: start: 20200421, end: 20200424

REACTIONS (1)
  - Hepatitis [Recovered/Resolved]

NARRATIVE: CASE EVENT DATE: 20200424
